FAERS Safety Report 18374427 (Version 1)
Quarter: 2020Q4

REPORT INFORMATION
  Report Type: Other
  Country: CA (occurrence: CA)
  Receive Date: 20201013
  Receipt Date: 20201013
  Transmission Date: 20210114
  Serious: Yes (Other)
  Sender: FDA-Public Use
  Company Number: CA-CELLTRION INC.-2020CA028579

PATIENT

DRUGS (13)
  1. RITUXIMAB (UNKNOWN) [Suspect]
     Active Substance: RITUXIMAB
     Indication: PRODUCT USED FOR UNKNOWN INDICATION
     Route: 065
  2. ALLOPURINOL. [Suspect]
     Active Substance: ALLOPURINOL
     Indication: IMMUNE-MEDIATED MYOSITIS
     Dosage: 100 MG
     Route: 065
  3. AZATHIOPRINE. [Suspect]
     Active Substance: AZATHIOPRINE
     Indication: IMMUNE-MEDIATED MYOSITIS
  4. AZATHIOPRINE. [Suspect]
     Active Substance: AZATHIOPRINE
     Indication: MYOPATHY
     Dosage: 250 MG, 1 EVERY 1 DAYS
     Route: 065
  5. RITUXAN [Suspect]
     Active Substance: RITUXIMAB
     Indication: PRODUCT USED FOR UNKNOWN INDICATION
     Route: 065
  6. AZATHIOPRINE. [Suspect]
     Active Substance: AZATHIOPRINE
     Indication: MYOPATHY
     Dosage: 25 MG, 1 EVERY 1 DAYS
     Route: 065
  7. AZATHIOPRINE. [Suspect]
     Active Substance: AZATHIOPRINE
     Indication: IMMUNE-MEDIATED MYOSITIS
  8. FEBUXOSTAT. [Suspect]
     Active Substance: FEBUXOSTAT
     Indication: PRODUCT USED FOR UNKNOWN INDICATION
     Dosage: 40.0 MILLIGRAM
     Route: 065
  9. ULORIC [Suspect]
     Active Substance: FEBUXOSTAT
     Indication: IMMUNE-MEDIATED MYOSITIS
     Dosage: 40 MG, 1 EVERY 1 DAYS
     Route: 058
  10. ALLOPURINOL. [Suspect]
     Active Substance: ALLOPURINOL
     Indication: MYOPATHY
     Dosage: 400 MG
     Route: 065
  11. ULORIC [Suspect]
     Active Substance: FEBUXOSTAT
     Indication: MYOPATHY
     Dosage: UNK
     Route: 065
  12. MYCOPHENOLATE MOFETIL. [Suspect]
     Active Substance: MYCOPHENOLATE MOFETIL
     Indication: PRODUCT USED FOR UNKNOWN INDICATION
     Route: 058
  13. METHOTREXATE. [Suspect]
     Active Substance: METHOTREXATE
     Indication: MYOPATHY
     Route: 058

REACTIONS (9)
  - Drug reaction with eosinophilia and systemic symptoms [Unknown]
  - Myopathy [Unknown]
  - Off label use [Unknown]
  - Drug ineffective [Unknown]
  - Hepatic mass [Unknown]
  - Eosinophilia [Unknown]
  - Product use in unapproved indication [Unknown]
  - Drug interaction [Unknown]
  - Pyrexia [Unknown]
